FAERS Safety Report 8773961 (Version 1)
Quarter: 2012Q4

REPORT INFORMATION
  Report Type: 
  Country: US (occurrence: US)
  Receive Date: 20120908
  Receipt Date: 20120908
  Transmission Date: 20130627
  Serious: Yes (Other)
  Sender: FDA-Public Use
  Company Number: US-ABBOTT-12P-163-0972182-00

PATIENT
  Age: 55 Year
  Sex: Female

DRUGS (1)
  1. HUMIRA 40 MG/ 0.8 ML PRE-FILLED SYRINGE [Suspect]
     Indication: RHEUMATOID ARTHRITIS
     Dosage: Only 1 dose was taken
     Dates: start: 20120816, end: 20120816

REACTIONS (3)
  - Dysphemia [Recovered/Resolved]
  - Swollen tongue [Recovered/Resolved]
  - Swollen tongue [Recovered/Resolved]
